FAERS Safety Report 15368069 (Version 1)
Quarter: 2018Q3

REPORT INFORMATION
  Report Type: Report from Study
  Country: MX (occurrence: MX)
  Receive Date: 20180910
  Receipt Date: 20180910
  Transmission Date: 20181010
  Serious: Yes (Life-Threatening, Other)
  Sender: FDA-Public Use
  Company Number: PHHY2018MX091167

PATIENT
  Age: 53 Year
  Sex: Female

DRUGS (4)
  1. GALVUS MET [Suspect]
     Active Substance: METFORMIN HYDROCHLORIDE\VILDAGLIPTIN
     Indication: DIABETES MELLITUS
     Dosage: 2 DF (METFORMIN 500MG, VILDAGLIPTIN 50MG), QD
     Route: 048
     Dates: start: 20050813
  2. LOSARTAN. [Concomitant]
     Active Substance: LOSARTAN
     Indication: BLOOD PRESSURE INCREASED
     Dosage: 1 DF, QD (STARTED BETWEEN 2002 TO 2003)
  3. EXFORGE HCT [Suspect]
     Active Substance: AMLODIPINE BESYLATE\HYDROCHLOROTHIAZIDE\VALSARTAN
     Indication: BLOOD PRESSURE INCREASED
     Dosage: 1.5 DF (AMLODIPINE 10 MG ,HYDROCHLOROTHIAZIDE 25 MG, VALSARTAN 320 MG), QD
     Route: 048
     Dates: start: 20050813
  4. CAPTOPRIL GENERICS [Concomitant]
     Indication: BLOOD PRESSURE INCREASED
     Dosage: 1 DF, QD (STARTED BETWEEN 2002 TO 2003)
     Route: 065

REACTIONS (6)
  - Memory impairment [Unknown]
  - Feeling abnormal [Unknown]
  - Wrong technique in product usage process [Not Recovered/Not Resolved]
  - Prescribed overdose [Not Recovered/Not Resolved]
  - Venous occlusion [Unknown]
  - Vein rupture [Unknown]

NARRATIVE: CASE EVENT DATE: 20050813
